FAERS Safety Report 5282090-X (Version None)
Quarter: 2007Q1

REPORT INFORMATION
  Report Type: 
  Country: None (occurrence: None)
  Receive Date: 20070330
  Receipt Date: 20070320
  Transmission Date: 20070707
  Serious: Yes (Disabling, Other)
  Sender: FDA-Public Use
  Company Number: FR-PFIZER INC-2007009841

PATIENT
  Age: 70 Year
  Sex: Male
  Weight: 75 kg

DRUGS (3)
  1. LYRICA [Suspect]
     Indication: NEURALGIA
     Route: 048
     Dates: start: 20061129, end: 20070120
  2. INDAPAMIDE [Concomitant]
     Indication: HYPERTENSION
     Dosage: DAILY DOSE:1.5MG
     Route: 048
  3. ACETAMINOPHEN [Concomitant]
     Dosage: DAILY DOSE:4GRAM
     Route: 048
     Dates: start: 20051001

REACTIONS (4)
  - ABASIA [None]
  - DYSPNOEA [None]
  - FORCED EXPIRATORY VOLUME DECREASED [None]
  - PAIN [None]
